FAERS Safety Report 9157669 (Version 2)
Quarter: 2014Q2

REPORT INFORMATION
  Report Type: Spontaneous
  Country: DK (occurrence: DK)
  Receive Date: 20130312
  Receipt Date: 20140519
  Transmission Date: 20141212
  Serious: Yes (Hospitalization)
  Sender: FDA-Public Use
  Company Number: PHHY2013DK022377

PATIENT
  Age: 31 Year
  Sex: Female
  Weight: 64 kg

DRUGS (4)
  1. METHOTREXATE SANDOZ [Suspect]
     Indication: ARTHRITIS
     Route: 048
     Dates: end: 201306
  2. REMICADE [Suspect]
     Indication: ARTHRITIS
     Dosage: 200 MG, ONCE IN 8 HRS
     Dates: start: 20110429, end: 20111208
  3. PREDNISOLON [Concomitant]
     Indication: PRODUCT USED FOR UNKNOWN INDICATION
     Dates: end: 201207
  4. CIPRAMIL [Concomitant]
     Indication: PRODUCT USED FOR UNKNOWN INDICATION
     Route: 048

REACTIONS (2)
  - Biopsy liver [Recovered/Resolved]
  - Hepatic enzyme increased [Recovered/Resolved]
